FAERS Safety Report 16398675 (Version 3)
Quarter: 2019Q3

REPORT INFORMATION
  Report Type: Spontaneous
  Country: US (occurrence: US)
  Receive Date: 20190606
  Receipt Date: 20190815
  Transmission Date: 20191004
  Serious: No
  Sender: FDA-Public Use
  Company Number: US-PFIZER INC-2019239026

PATIENT
  Age: 48 Year
  Sex: Female

DRUGS (1)
  1. XALATAN [Suspect]
     Active Substance: LATANOPROST
     Indication: NORMAL TENSION GLAUCOMA
     Dosage: 2 GTT, 1X/DAY (1 DROP AT NIGHT IN BOTH EYES)
     Route: 061
     Dates: start: 20170202

REACTIONS (1)
  - Drug ineffective [Unknown]
